FAERS Safety Report 8983674 (Version 1)
Quarter: 2012Q4

REPORT INFORMATION
  Report Type: 
  Country: BR (occurrence: BR)
  Receive Date: 20121224
  Receipt Date: 20121224
  Transmission Date: 20130627
  Serious: Yes (Hospitalization)
  Sender: FDA-Public Use
  Company Number: BR-BRISTOL-MYERS SQUIBB COMPANY-17217084

PATIENT
  Age: 65 Year
  Sex: Male

DRUGS (1)
  1. ONGLYZA TABS 5 MG [Suspect]
     Indication: DIABETES MELLITUS
     Route: 048
     Dates: start: 2012

REACTIONS (3)
  - Renal disorder [Unknown]
  - Diabetes mellitus [Unknown]
  - Hypertension [Unknown]
